FAERS Safety Report 5168015-6 (Version None)
Quarter: 2006Q4

REPORT INFORMATION
  Report Type: 
  Country: None (occurrence: None)
  Receive Date: 20061208
  Receipt Date: 20060220
  Transmission Date: 20070319
  Serious: No
  Sender: FDA-Public Use
  Company Number: US-GLAXOSMITHKLINE-A0594399A

PATIENT
  Age: 57 Year
  Sex: Female

DRUGS (4)
  1. AVANDAMET [Suspect]
     Route: 048
  2. BLOOD PRESSURE MEDICATION [Concomitant]
     Route: 048
  3. UNSPECIFIED MEDICATION [Concomitant]
  4. ASPIRIN [Concomitant]

REACTIONS (3)
  - DIZZINESS [None]
  - EYE DISORDER [None]
  - FEELING ABNORMAL [None]
